FAERS Safety Report 8832249 (Version 3)
Quarter: 2015Q3

REPORT INFORMATION
  Report Type: Report from Study
  Country: US (occurrence: US)
  Receive Date: 20121009
  Receipt Date: 20150916
  Transmission Date: 20151125
  Serious: Yes (Hospitalization)
  Sender: FDA-Public Use
  Company Number: US-VERTEX PHARMACEUTICAL INC.-2012-022298

PATIENT
  Age: 18 Year
  Sex: Male

DRUGS (2)
  1. KALYDECO [Suspect]
     Active Substance: IVACAFTOR
     Indication: CYSTIC FIBROSIS
     Dosage: 150 MG, QD
     Route: 048
     Dates: start: 20120420, end: 201212
  2. KALYDECO [Suspect]
     Active Substance: IVACAFTOR
     Dosage: 150 MG, QD
     Route: 048
     Dates: start: 2012

REACTIONS (5)
  - Nasopharyngitis [Unknown]
  - Treatment noncompliance [Recovered/Resolved]
  - Cough [Not Recovered/Not Resolved]
  - Inappropriate schedule of drug administration [Recovered/Resolved]
  - Lung infection [Recovered/Resolved]

NARRATIVE: CASE EVENT DATE: 2012
